FAERS Safety Report 19348907 (Version 1)
Quarter: 2021Q2

REPORT INFORMATION
  Report Type: Spontaneous
  Country: US (occurrence: US)
  Receive Date: 20210529
  Receipt Date: 20210529
  Transmission Date: 20210717
  Serious: No
  Sender: FDA-Public Use
  Company Number: None

PATIENT
  Age: 49 Year
  Sex: Male
  Weight: 63 kg

DRUGS (1)
  1. TUBERSOL [Suspect]
     Active Substance: TUBERCULIN PURIFIED PROTEIN DERIVATIVE
     Indication: TUBERCULIN TEST
     Route: 058
     Dates: start: 20210524, end: 20210524

REACTIONS (4)
  - Fatigue [None]
  - Migraine [None]
  - Presyncope [None]
  - Musculoskeletal stiffness [None]

NARRATIVE: CASE EVENT DATE: 20210524
